FAERS Safety Report 4947873-1 (Version None)
Quarter: 2006Q1

REPORT INFORMATION
  Report Type: 
  Country: None (occurrence: None)
  Receive Date: 20060313
  Receipt Date: 20060302
  Transmission Date: 20060701
  Serious: Yes (Hospitalization)
  Sender: FDA-Public Use
  Company Number: GXKR2006NL01044

PATIENT
  Age: 16 Year
  Sex: Male

DRUGS (4)
  1. AMOXICILLIN [Suspect]
     Indication: INFECTION PROPHYLAXIS
     Dosage: 500 MG, QID, INTRAVENOUS; 500  MG, QD, ORAL
     Route: 042
  2. AMOXICILLIN [Suspect]
     Indication: INFECTION PROPHYLAXIS
     Dosage: 500 MG, QID, INTRAVENOUS; 500  MG, QD, ORAL
     Route: 042
  3. IBUPROFEN [Suspect]
     Indication: INFECTION PROPHYLAXIS
     Dosage: 500 MG, TID, RECTAL; 400 MG, TID, ORAL
     Route: 054
  4. IBUPROFEN [Suspect]
     Indication: INFECTION PROPHYLAXIS
     Dosage: 500 MG, TID, RECTAL; 400 MG, TID, ORAL
     Route: 054

REACTIONS (6)
  - CLOSTRIDIUM COLITIS [None]
  - DRUG INTERACTION [None]
  - ENTEROCOLITIS HAEMORRHAGIC [None]
  - HAEMOLYTIC ANAEMIA [None]
  - MUCOSAL ULCERATION [None]
  - THROMBOCYTOPENIA [None]
